FAERS Safety Report 6641613-6 (Version None)
Quarter: 2010Q1

REPORT INFORMATION
  Report Type: 
  Country: None (occurrence: None)
  Receive Date: 20100317
  Receipt Date: 20100317
  Transmission Date: 20100710
  Serious: No
  Sender: FDA-Public Use
  Company Number: None

PATIENT
  Sex: Female
  Weight: 23 kg

DRUGS (8)
  1. CYTARABINE [Suspect]
     Dosage: 72 MG
  2. DEXAMETHASONE [Suspect]
     Dosage: 45 MG
  3. HYDROCORTISONE [Suspect]
     Dosage: 36 MG
  4. MERCAPTOPURINE [Suspect]
     Dosage: 2375 MG
  5. METHOTREXATE [Suspect]
     Dosage: 93.75 MG
  6. PEG-L-ASPARAGINASE (K-H) [Suspect]
     Dosage: 4400 UNIT
  7. VINCRISTINE SULFATE [Suspect]
     Dosage: 5.6 MG
  8. CYCLOPHOSPHAMIDE [Suspect]
     Dosage: 200 MG

REACTIONS (4)
  - CARDIO-RESPIRATORY ARREST [None]
  - CONVULSION [None]
  - DYSPNOEA [None]
  - NO THERAPEUTIC RESPONSE [None]
